FAERS Safety Report 8330031-0 (Version None)
Quarter: 2012Q2

REPORT INFORMATION
  Report Type: 
  Country: None (occurrence: None)
  Receive Date: 20120502
  Receipt Date: 20120424
  Transmission Date: 20120825
  Serious: Yes (Other)
  Sender: FDA-Public Use
  Company Number: US-US-EMD SERONO, INC.-7128548

PATIENT
  Sex: Male

DRUGS (3)
  1. ELECTRONIC CIGARETTE [Concomitant]
  2. REBIF [Suspect]
     Indication: PRODUCT USED FOR UNKNOWN INDICATION
     Route: 058
     Dates: start: 20070118
  3. COMMIT GUM [Concomitant]
     Indication: SMOKING CESSATION THERAPY

REACTIONS (6)
  - EMPHYSEMA [None]
  - INAPPROPRIATE SCHEDULE OF DRUG ADMINISTRATION [None]
  - ERECTILE DYSFUNCTION [None]
  - FUNCTIONAL GASTROINTESTINAL DISORDER [None]
  - TOOTH EXTRACTION [None]
  - CHRONIC OBSTRUCTIVE PULMONARY DISEASE [None]
